FAERS Safety Report 18151535 (Version 2)
Quarter: 2021Q2

REPORT INFORMATION
  Report Type: Spontaneous
  Country: US (occurrence: US)
  Receive Date: 20200814
  Receipt Date: 20210628
  Transmission Date: 20210717
  Serious: No
  Sender: FDA-Public Use
  Company Number: US-HORIZON-DUE-0231-2020

PATIENT
  Sex: Female

DRUGS (7)
  1. DUEXIS [Suspect]
     Active Substance: FAMOTIDINE\IBUPROFEN
     Indication: PRODUCT USED FOR UNKNOWN INDICATION
  2. IBUPROFEN. [Concomitant]
     Active Substance: IBUPROFEN
  3. TORADOL [Suspect]
     Active Substance: KETOROLAC TROMETHAMINE
  4. ASPIRIN. [Concomitant]
     Active Substance: ASPIRIN
  5. OXYCODONE [Concomitant]
     Active Substance: OXYCODONE
  6. FLEXERIL [Concomitant]
     Active Substance: CYCLOBENZAPRINE HYDROCHLORIDE
  7. MOBIC [Concomitant]
     Active Substance: MELOXICAM

REACTIONS (2)
  - Overdose [Unknown]
  - Hepatomegaly [Unknown]
